FAERS Safety Report 22960754 (Version 3)
Quarter: 2023Q4

REPORT INFORMATION
  Report Type: Spontaneous
  Country: GB (occurrence: GB)
  Receive Date: 20230920
  Receipt Date: 20231018
  Transmission Date: 20240110
  Serious: Yes (Hospitalization, Other)
  Sender: FDA-Public Use
  Company Number: GB-SANDOZ-SDZ2023GB030509

PATIENT
  Age: 62 Year
  Sex: Male
  Weight: 101.9 kg

DRUGS (3)
  1. CABAZITAXEL [Suspect]
     Active Substance: CABAZITAXEL
     Indication: Prostate cancer
     Dosage: ADMINISTERED VIA A DRIP INTO A PATIENT^S BLOODSTREAM, EVERY 21 DAYS
     Route: 042
     Dates: start: 20230329, end: 20230516
  2. OMEPRAZOLE [Concomitant]
     Active Substance: OMEPRAZOLE
     Indication: Supportive care
     Dosage: ONCE A DAY FOR 3 DAYS AS DIRECTED BY PRESCRIBER
     Route: 048
     Dates: start: 20230329, end: 20230516
  3. PREDNISOLONE [Concomitant]
     Active Substance: PREDNISOLONE
     Indication: Prostate cancer
     Dosage: ONCE A DAY FOR 21 DAYS
     Route: 048
     Dates: start: 20230329, end: 20230516

REACTIONS (4)
  - Infection [Recovering/Resolving]
  - Toxicity to various agents [Unknown]
  - Overdose [Unknown]
  - Off label use [Unknown]

NARRATIVE: CASE EVENT DATE: 20230419
